FAERS Safety Report 8762863 (Version 2)
Quarter: 2012Q4

REPORT INFORMATION
  Report Type: 
  Country: US (occurrence: US)
  Receive Date: 20120828
  Receipt Date: 20120926
  Transmission Date: 20130627
  Serious: No
  Sender: FDA-Public Use
  Company Number: US-PFIZER INC-2012208441

PATIENT
  Age: 65 Year
  Sex: Female

DRUGS (4)
  1. NORVASC [Suspect]
     Indication: OEDEMA
     Dosage: 10 mg, 1x/day
  2. LOPRESSOR [Concomitant]
     Indication: HYPERTENSION
     Dosage: 50 mg, 2x/day
  3. HCTZ [Concomitant]
     Indication: HYPERTENSION
     Dosage: 12.5 mg, 1x/day
  4. LISINOPRIL [Concomitant]
     Indication: HYPERTENSION
     Dosage: 10 mg, 1x/day

REACTIONS (1)
  - Oedema peripheral [Recovered/Resolved]
